FAERS Safety Report 6031960-3 (Version None)
Quarter: 2009Q1

REPORT INFORMATION
  Report Type: 
  Country: None (occurrence: None)
  Receive Date: 20090107
  Receipt Date: 20081223
  Transmission Date: 20090719
  Serious: Yes (Hospitalization, Other)
  Sender: FDA-Public Use
  Company Number: 2008S1022764

PATIENT
  Age: 71 Year
  Sex: Male

DRUGS (3)
  1. BACLOFEN [Suspect]
     Indication: DRUG USE FOR UNKNOWN INDICATION
     Dosage: 30 MG; ORAL
     Route: 048
     Dates: start: 20081105
  2. HALDOL SOLUTAB [Suspect]
     Indication: DRUG USE FOR UNKNOWN INDICATION
     Dosage: ORAL
     Route: 048
     Dates: start: 20080916, end: 20081105
  3. WARFARIN SODIUM [Concomitant]

REACTIONS (3)
  - DYSPHAGIA [None]
  - FATIGUE [None]
  - MUSCULOSKELETAL STIFFNESS [None]
